FAERS Safety Report 10130783 (Version 1)
Quarter: 2014Q2

REPORT INFORMATION
  Report Type: Spontaneous
  Country: US (occurrence: None)
  Receive Date: 20140425
  Receipt Date: 20140425
  Transmission Date: 20141212
  Serious: No
  Sender: FDA-Public Use
  Company Number: None

PATIENT
  Age: 61 Year
  Sex: Female
  Weight: 108.86 kg

DRUGS (1)
  1. DAPTOMYCIN/CUBICIN [Suspect]
     Indication: STAPHYLOCOCCAL INFECTION
     Dosage: 6MG/KG, ONCE DAILY?
     Dates: start: 20131225, end: 20140106

REACTIONS (8)
  - Musculoskeletal disorder [None]
  - Speech disorder [None]
  - Eye disorder [None]
  - Pain [None]
  - Asthenia [None]
  - Blood creatine phosphokinase increased [None]
  - Muscle twitching [None]
  - Movement disorder [None]
